FAERS Safety Report 19912974 (Version 5)
Quarter: 2021Q4

REPORT INFORMATION
  Report Type: Spontaneous
  Country: DE (occurrence: DE)
  Receive Date: 20211004
  Receipt Date: 20211101
  Transmission Date: 20220303
  Serious: Yes (Hospitalization)
  Sender: FDA-Public Use
  Company Number: DE-CELGENE-DEU-20210907392

PATIENT
  Age: 76 Year
  Sex: Female
  Weight: 66 kg

DRUGS (15)
  1. AZACITIDINE [Suspect]
     Active Substance: AZACITIDINE
     Indication: Myelodysplastic syndrome
     Dosage: 75 MILLIGRAM/SQ. METER
     Route: 058
     Dates: start: 20210823, end: 20210831
  2. VENETOCLAX [Suspect]
     Active Substance: VENETOCLAX
     Indication: Myelodysplastic syndrome
     Dosage: 50 MILLIGRAM
     Route: 048
     Dates: start: 20210823, end: 20210904
  3. ZOFRAN [Concomitant]
     Active Substance: ONDANSETRON HYDROCHLORIDE
     Indication: Nausea
     Route: 048
     Dates: start: 20210831
  4. Novalgin [Concomitant]
     Indication: Pain
     Dosage: 2000 MILLIGRAM
     Route: 048
     Dates: start: 20210906
  5. VITAMIN B12 [Concomitant]
     Active Substance: CYANOCOBALAMIN
     Indication: Prophylaxis
     Dosage: 20000 IU (INTERNATIONAL UNIT)
     Route: 048
     Dates: start: 202106
  6. SPIRONOLACTONE [Concomitant]
     Active Substance: SPIRONOLACTONE
     Indication: Hypertension
     Dosage: 25 MILLIGRAM
     Route: 048
     Dates: start: 2001
  7. CANDESARTAN [Concomitant]
     Active Substance: CANDESARTAN
     Indication: Hypertension
     Dosage: 8 MILLIGRAM
     Route: 048
     Dates: start: 2001
  8. XIPAGAMMA [Concomitant]
     Indication: Hypertension
     Dosage: 10 MILLIGRAM
     Route: 048
     Dates: start: 2001
  9. METFORMIN [Concomitant]
     Active Substance: METFORMIN HYDROCHLORIDE
     Indication: Diabetes mellitus
     Dosage: 1700 MILLIGRAM
     Route: 048
     Dates: start: 2001, end: 20210917
  10. METFORMIN [Concomitant]
     Active Substance: METFORMIN HYDROCHLORIDE
     Dosage: 1700 MILLIGRAM
     Route: 048
     Dates: start: 20210925
  11. SITAGLIPTIN PHOSPHATE [Concomitant]
     Active Substance: SITAGLIPTIN PHOSPHATE
     Indication: Diabetes mellitus
     Dosage: 10 MILLIGRAM
     Route: 048
     Dates: start: 2001, end: 20210917
  12. SITAGLIPTIN PHOSPHATE [Concomitant]
     Active Substance: SITAGLIPTIN PHOSPHATE
     Dosage: 10 MILLIGRAM
     Route: 048
     Dates: start: 20210925
  13. GLYBURIDE [Concomitant]
     Active Substance: GLYBURIDE
     Indication: Diabetes mellitus
     Dosage: 7 MILLIGRAM
     Route: 048
     Dates: start: 2001
  14. LEVOTHYROXINE SODIUM [Concomitant]
     Active Substance: LEVOTHYROXINE SODIUM
     Indication: Hypothyroidism
     Dosage: 50 MICROGRAM
     Route: 048
     Dates: start: 2007
  15. SODIUM CHLORIDE [Concomitant]
     Active Substance: SODIUM CHLORIDE
     Indication: Prophylaxis
     Route: 041
     Dates: start: 20210823, end: 20210823

REACTIONS (1)
  - Cholangitis [Recovered/Resolved]

NARRATIVE: CASE EVENT DATE: 20210917
